FAERS Safety Report 12079091 (Version 5)
Quarter: 2016Q4

REPORT INFORMATION
  Report Type: Spontaneous
  Country: US (occurrence: US)
  Receive Date: 20160216
  Receipt Date: 20161101
  Transmission Date: 20170206
  Serious: Yes (Hospitalization, Other)
  Sender: FDA-Public Use
  Company Number: US-PFIZER INC-2014293597

PATIENT
  Age: 80 Year
  Sex: Male
  Weight: 74.38 kg

DRUGS (28)
  1. POTASSIUM CHLORIDE. [Concomitant]
     Active Substance: POTASSIUM CHLORIDE
     Dosage: 20 MEQ, 2X/DAY
  2. SUTENT [Suspect]
     Active Substance: SUNITINIB MALATE
     Dosage: 25 MG, DAILY (TAKE ONE)
     Route: 048
  3. DOXAZOSIN [Concomitant]
     Active Substance: DOXAZOSIN\DOXAZOSIN MESYLATE
     Dosage: 2 MG, UNK
  4. EFFER K 20 MEQ [Concomitant]
     Dosage: UNK
  5. LEVOTHYROXINE. [Concomitant]
     Active Substance: LEVOTHYROXINE
     Dosage: 50 UG, DAILY
     Route: 048
  6. SANDOSTATIN [Concomitant]
     Active Substance: OCTREOTIDE ACETATE
     Dosage: 30 MG, UNK
     Route: 030
     Dates: start: 20150206
  7. MIDODRINE [Concomitant]
     Active Substance: MIDODRINE
     Dosage: 5 MG, UNK
  8. IRBESARTAN. [Concomitant]
     Active Substance: IRBESARTAN
     Indication: BLOOD PRESSURE ABNORMAL
     Dosage: 75 MG, DAILY (TAKE 0.5 TABLET(S) EVERY DAY )
     Route: 048
  9. LANTUS SOLOSTAR [Concomitant]
     Active Substance: INSULIN GLARGINE
     Dosage: 3 ML, UNK (100 UNIT/ML )
     Route: 058
  10. PNEUMOCOCCAL POLYSACCHARIDE VACCINE [Concomitant]
     Active Substance: PNEUMOCOCCAL VACCINE POLYVALENT
     Indication: IMMUNISATION
     Dosage: UNK
     Dates: start: 20021011
  11. PNEUMOCOCCAL POLYSACCHARIDE VACCINE [Concomitant]
     Active Substance: PNEUMOCOCCAL VACCINE POLYVALENT
     Dosage: UNK
     Dates: start: 20130529
  12. AVAPRO [Concomitant]
     Active Substance: IRBESARTAN
     Dosage: 75 MG, DAILY (EVERY DAY)
     Route: 048
     Dates: start: 20141021
  13. IRBESARTAN. [Concomitant]
     Active Substance: IRBESARTAN
     Dosage: 150 MG, UNK
  14. TETANUS AND DIPHTHERIA TOXOIDS ADSORBED [Concomitant]
     Active Substance: CLOSTRIDIUM TETANI\CLOSTRIDIUM TETANI TOXOID ANTIGEN (FORMALDEHYDE INACTIVATED)\CORYNEBACTERIUM DIPHTHERIAE\CORYNEBACTERIUM DIPHTHERIAE TOXOID ANTIGEN (FORMALDEHYDE INACTIVATED)
     Indication: IMMUNISATION
     Dosage: UNK
  15. FERROUS SULFATE. [Concomitant]
     Active Substance: FERROUS SULFATE
     Dosage: 324 MG, UNK (324 MG (65 MG IRON))
     Route: 048
  16. DOXAZOSIN [Concomitant]
     Active Substance: DOXAZOSIN\DOXAZOSIN MESYLATE
     Dosage: 4 MG, UNK
  17. CENTRUM SILVER [Concomitant]
     Active Substance: MINERALS\VITAMINS
     Dosage: UNK, DAILY
     Dates: start: 20140204
  18. FUROSEMIDE. [Concomitant]
     Active Substance: FUROSEMIDE
     Indication: POLYURIA
     Dosage: 40 MG, 1X/DAY
     Dates: start: 2015, end: 2016
  19. INFLUENZA [Concomitant]
     Active Substance: INFLUENZA VIRUS VACCINE
     Dosage: UNK
     Route: 030
     Dates: start: 20131025
  20. SUTENT [Suspect]
     Active Substance: SUNITINIB MALATE
     Indication: NEUROENDOCRINE CARCINOMA
     Dosage: 37.5 MG, DAILY
     Route: 048
     Dates: start: 20140718, end: 20150529
  21. AMLODIPINE [Concomitant]
     Active Substance: AMLODIPINE BESYLATE
     Indication: BLOOD PRESSURE ABNORMAL
     Dosage: 5 MG, 2X/DAY
     Route: 048
  22. HUMALOG [Concomitant]
     Active Substance: INSULIN LISPRO
     Dosage: 100 IU/ML, UNK (AS DIRECTED)
     Route: 058
     Dates: start: 20130913
  23. MAGNESIUM OXIDE. [Concomitant]
     Active Substance: MAGNESIUM OXIDE
     Dosage: 400 MG, DAILY
     Route: 048
  24. VITAMIN B COMPLEX [Concomitant]
     Active Substance: CYANOCOBALAMIN\DEXPANTHENOL\NIACINAMIDE\PYRIDOXINE HYDROCHLORIDE\RIBOFLAVIN 5^-PHOSPHATE SODIUM\THIAMINE HYDROCHLORIDE\VITAMIN B COMPLEX
     Dosage: 1000 UG, DAILY
     Route: 048
     Dates: start: 20151103
  25. INFLUENZA [Concomitant]
     Active Substance: INFLUENZA VIRUS VACCINE
     Indication: IMMUNISATION
     Dosage: UNK
     Dates: start: 201210
  26. MENINGOCOCCAL POLYSACCHARIDE VACCINE A NOS [Concomitant]
     Active Substance: MENINGOCOCCAL POLYSACCHARIDE VACCINE A\NEISSERIA MENINGITIDIS GROUP A CAPSULAR POLYSACCHARIDE ANTIGEN
     Indication: IMMUNISATION
     Dosage: UNK
     Dates: start: 2006
  27. VARICELLA ZOSTER VACCINE [Concomitant]
     Active Substance: VARICELLA-ZOSTER VIRUS STRAIN OKA/MERCK LIVE ANTIGEN
     Indication: IMMUNISATION
     Dosage: UNK
     Dates: start: 2007
  28. OCTREOTIDE ACETATE. [Concomitant]
     Active Substance: OCTREOTIDE ACETATE
     Dosage: 1 ML, AS NEEDED (3 TIMES A DAY)
     Route: 058

REACTIONS (15)
  - Diarrhoea [Recovering/Resolving]
  - Hypertension [Unknown]
  - Muscular weakness [Unknown]
  - Hypotension [Unknown]
  - Dehydration [Unknown]
  - Weight decreased [Unknown]
  - Acute kidney injury [Unknown]
  - Blood glucose increased [Unknown]
  - Dry mouth [Unknown]
  - Fatigue [Unknown]
  - Blood pressure fluctuation [Unknown]
  - Sinus disorder [Unknown]
  - Proteinuria [Unknown]
  - Oedema [Unknown]
  - Pollakiuria [Unknown]
